FAERS Safety Report 10290710 (Version 1)
Quarter: 2014Q3

REPORT INFORMATION
  Report Type: Spontaneous
  Country: US (occurrence: None)
  Receive Date: 20140708
  Receipt Date: 20140708
  Transmission Date: 20150326
  Serious: Yes (Hospitalization, Other)
  Sender: FDA-Public Use
  Company Number: None

PATIENT
  Age: 54 Year
  Sex: Male
  Weight: 88.45 kg

DRUGS (2)
  1. NEURAGEN [Suspect]
     Active Substance: HOMEOPATHICS
     Indication: PAIN IN EXTREMITY
     Dosage: APPLY TO SKIN UP TO 4X DAILY  FOUR TIMES DAILY  APPLIED TO A SURFACE, USUALLY THE SKIN
     Route: 061
     Dates: start: 20140704, end: 20140704
  2. NEURAGEN [Suspect]
     Active Substance: HOMEOPATHICS
     Indication: NEUROPATHY PERIPHERAL
     Dosage: APPLY TO SKIN UP TO 4X DAILY  FOUR TIMES DAILY  APPLIED TO A SURFACE, USUALLY THE SKIN
     Route: 061
     Dates: start: 20140704, end: 20140704

REACTIONS (5)
  - Dermatitis contact [None]
  - Burns second degree [None]
  - Burns first degree [None]
  - Peripheral swelling [None]
  - Chemical injury [None]

NARRATIVE: CASE EVENT DATE: 20140706
